FAERS Safety Report 8947306 (Version 2)
Quarter: 2013Q1

REPORT INFORMATION
  Report Type: Spontaneous
  Country: IT (occurrence: IT)
  Receive Date: 20121205
  Receipt Date: 20130301
  Transmission Date: 20140127
  Serious: Yes (Hospitalization, Other)
  Sender: FDA-Public Use
  Company Number: IT-ELI_LILLY_AND_COMPANY-IT201211007361

PATIENT
  Age: 85 Year
  Sex: Female

DRUGS (9)
  1. ZYPREXA [Suspect]
     Dosage: 5 MG, QD
     Route: 048
     Dates: start: 20110819, end: 20120818
  2. MIRTAZAPINE [Concomitant]
     Dosage: UNK, QD
     Route: 048
     Dates: start: 20110819, end: 20120818
  3. TRAZODONE [Concomitant]
     Dosage: 100 MG, QD
     Route: 048
     Dates: start: 20110819, end: 20120818
  4. BISOPROLOL [Concomitant]
  5. ATARAX [Concomitant]
     Dosage: 25 MG, UNK
  6. ZOLPIDEM [Concomitant]
     Dosage: 10 MG, UNK
  7. NEXIUM [Concomitant]
     Dosage: 20 MG, UNK
  8. CARDIOASPIRIN [Concomitant]
     Dosage: 100 MG, UNK
  9. HYDROXYZINE [Concomitant]

REACTIONS (5)
  - Syncope [Recovered/Resolved]
  - Clonus [Recovered/Resolved]
  - Electrocardiogram abnormal [Not Recovered/Not Resolved]
  - Myoglobin blood increased [Not Recovered/Not Resolved]
  - Sinus tachycardia [Not Recovered/Not Resolved]
